FAERS Safety Report 7233588-6 (Version None)
Quarter: 2011Q1

REPORT INFORMATION
  Report Type: 
  Country: None (occurrence: None)
  Receive Date: 20110119
  Receipt Date: 20100129
  Transmission Date: 20110831
  Serious: No
  Sender: FDA-Public Use
  Company Number: US-PFIZER INC-2010012583

PATIENT
  Sex: Female
  Weight: 65.8 kg

DRUGS (4)
  1. TAXOL [Concomitant]
  2. XALATAN [Concomitant]
     Indication: GLAUCOMA
  3. AROMASIN [Suspect]
     Indication: BREAST CANCER
     Dosage: 25 MG, 1X/DAY
     Route: 048
     Dates: start: 20040101, end: 20091101
  4. COSOPT [Concomitant]
     Indication: GLAUCOMA

REACTIONS (3)
  - PAIN [None]
  - DRY SKIN [None]
  - ALOPECIA [None]
